FAERS Safety Report 5931405-5 (Version None)
Quarter: 2008Q4

REPORT INFORMATION
  Report Type: 
  Country: None (occurrence: None)
  Receive Date: 20081027
  Receipt Date: 20081015
  Transmission Date: 20090506
  Serious: No
  Sender: FDA-Public Use
  Company Number: NL-EISAI MEDIAL RESEARCH-E3810-02215-SPO-NL

PATIENT
  Sex: Male

DRUGS (11)
  1. RABEPRAZOLE SODIUM [Suspect]
     Indication: COLITIS
     Route: 048
  2. RABEPRAZOLE SODIUM [Suspect]
     Indication: GASTROOESOPHAGEAL REFLUX DISEASE
  3. MAGNESIUM OXIDE [Concomitant]
  4. CASODEX [Concomitant]
  5. ZOLADEX [Concomitant]
  6. SIMVASTATIN [Concomitant]
  7. AMILORIDE HCL AND HYDROCHLOROTHIAZIDE [Concomitant]
  8. DILTIAZEM HCL [Concomitant]
  9. ISOSORBIDE MONONITRATE [Concomitant]
  10. SELDANE [Concomitant]
  11. BETAHISTINE [Concomitant]

REACTIONS (1)
  - RECTAL HAEMORRHAGE [None]
